FAERS Safety Report 7907008-X (Version None)
Quarter: 2011Q4

REPORT INFORMATION
  Report Type: 
  Country: None (occurrence: None)
  Receive Date: 20111109
  Receipt Date: 20111109
  Transmission Date: 20120403
  Serious: Yes (Hospitalization)
  Sender: FDA-Public Use
  Company Number: None

PATIENT
  Sex: Male

DRUGS (1)
  1. AVONEX [Suspect]
     Dosage: 30 MCG 30 MCG QWK SQ
     Route: 058
     Dates: start: 20110401

REACTIONS (3)
  - MENTAL DISORDER [None]
  - HOMICIDAL IDEATION [None]
  - LOSS OF CONSCIOUSNESS [None]
